FAERS Safety Report 7379008-2 (Version None)
Quarter: 2011Q1

REPORT INFORMATION
  Report Type: 
  Country: None (occurrence: None)
  Receive Date: 20110324
  Receipt Date: 20110324
  Transmission Date: 20110831
  Serious: Yes (Death)
  Sender: FDA-Public Use
  Company Number: None

PATIENT
  Age: 87 Year
  Sex: Female
  Weight: 102.0593 kg

DRUGS (1)
  1. VANCOMYCIN [Suspect]
     Indication: STAPHYLOCOCCAL INFECTION
     Dosage: IV
     Route: 042
     Dates: start: 20110107, end: 20110107

REACTIONS (2)
  - PULSELESS ELECTRICAL ACTIVITY [None]
  - CARDIO-RESPIRATORY ARREST [None]
